FAERS Safety Report 25151922 (Version 5)
Quarter: 2025Q2

REPORT INFORMATION
  Report Type: Spontaneous
  Country: IT (occurrence: IT)
  Receive Date: 20250402
  Receipt Date: 20250618
  Transmission Date: 20250716
  Serious: Yes (Hospitalization, Other)
  Sender: BIOGEN
  Company Number: IT-BIOGEN-2025BI01303116

PATIENT
  Age: 40 Year
  Sex: Female
  Weight: 55 kg

DRUGS (11)
  1. TYSABRI [Suspect]
     Active Substance: NATALIZUMAB
     Indication: Relapsing-remitting multiple sclerosis
     Route: 050
     Dates: start: 20140704
  2. TYSABRI [Suspect]
     Active Substance: NATALIZUMAB
     Route: 050
     Dates: start: 20170203
  3. TYSABRI [Suspect]
     Active Substance: NATALIZUMAB
     Route: 050
     Dates: start: 201801, end: 20250127
  4. PREGABALIN [Concomitant]
     Active Substance: PREGABALIN
     Indication: Paraesthesia
     Route: 050
  5. Laxipeg [Concomitant]
     Indication: Constipation
     Route: 050
  6. SERTRALINE [Concomitant]
     Active Substance: SERTRALINE HYDROCHLORIDE
     Indication: Depression
     Route: 050
  7. WELLBUTRIN [Concomitant]
     Active Substance: BUPROPION HYDROCHLORIDE
     Indication: Depression
     Route: 050
  8. TOPAMAX [Concomitant]
     Active Substance: TOPIRAMATE
     Indication: Migraine
     Route: 050
  9. DELORAZEPAM [Concomitant]
     Active Substance: DELORAZEPAM
     Indication: Depression
     Route: 050
  10. TRAZODONE HYDROCHLORIDE [Concomitant]
     Active Substance: TRAZODONE HYDROCHLORIDE
     Indication: Depression
     Route: 050
  11. METOCAL VITAMINA D3 [Concomitant]
     Indication: Constipation
     Route: 050

REACTIONS (4)
  - Progressive multifocal leukoencephalopathy [Not Recovered/Not Resolved]
  - Immune reconstitution inflammatory syndrome [Recovered/Resolved with Sequelae]
  - Influenza [Unknown]
  - Prescribed underdose [Recovered/Resolved]

NARRATIVE: CASE EVENT DATE: 20180101
